FAERS Safety Report 15732123 (Version 2)
Quarter: 2018Q4

REPORT INFORMATION
  Report Type: Spontaneous
  Country: US (occurrence: US)
  Receive Date: 20181217
  Receipt Date: 20181221
  Transmission Date: 20190205
  Serious: Yes (Other)
  Sender: FDA-Public Use
  Company Number: US-ALLERGAN-1857507US

PATIENT
  Age: 48 Year
  Sex: Male

DRUGS (3)
  1. KYBELLA [Suspect]
     Active Substance: DEOXYCHOLIC ACID
     Dosage: UNK
     Dates: start: 201607, end: 201607
  2. KYBELLA [Suspect]
     Active Substance: DEOXYCHOLIC ACID
     Dosage: REPORTED AS 4.25
     Dates: start: 20160825, end: 20160825
  3. KYBELLA [Suspect]
     Active Substance: DEOXYCHOLIC ACID
     Indication: LIPOLYSIS PROCEDURE
     Dosage: UNK
     Dates: start: 20170106, end: 20170106

REACTIONS (1)
  - Thyroid neoplasm [Unknown]
